FAERS Safety Report 6006710-7 (Version None)
Quarter: 2008Q4

REPORT INFORMATION
  Report Type: 
  Country: None (occurrence: None)
  Receive Date: 20081217
  Receipt Date: 20081210
  Transmission Date: 20090506
  Serious: Yes (Hospitalization, Disabling)
  Sender: FDA-Public Use
  Company Number: GB-ASTRAZENECA-2008GB02258

PATIENT
  Age: 44 Year
  Sex: Male

DRUGS (2)
  1. CRESTOR [Suspect]
     Indication: BLOOD CHOLESTEROL INCREASED
     Route: 048
     Dates: start: 20081024, end: 20081027
  2. DIFENE [Concomitant]
     Dosage: 25MG

REACTIONS (8)
  - ABASIA [None]
  - CHEST PAIN [None]
  - FACE OEDEMA [None]
  - GENERAL PHYSICAL CONDITION ABNORMAL [None]
  - MALAISE [None]
  - MUSCULOSKELETAL PAIN [None]
  - OEDEMA PERIPHERAL [None]
  - RASH GENERALISED [None]
